FAERS Safety Report 8161563-6 (Version None)
Quarter: 2012Q1

REPORT INFORMATION
  Report Type: 
  Country: None (occurrence: None)
  Receive Date: 20120224
  Receipt Date: 20120221
  Transmission Date: 20120608
  Serious: No
  Sender: FDA-Public Use
  Company Number: US-SANOFI-AVENTIS-2012SA011650

PATIENT
  Age: 22 Year
  Sex: Female

DRUGS (3)
  1. ARAVA [Suspect]
     Dates: end: 20120101
  2. HORMONAL CONTRACEPTIVES FOR SYSTEMIC USE [Concomitant]
  3. ARAVA [Suspect]
     Indication: RHEUMATOID ARTHRITIS

REACTIONS (1)
  - MATERNAL EXPOSURE DURING PREGNANCY [None]
